FAERS Safety Report 12455282 (Version 1)
Quarter: 2016Q2

REPORT INFORMATION
  Report Type: Spontaneous
  Country: US (occurrence: None)
  Receive Date: 20160609
  Receipt Date: 20160609
  Transmission Date: 20160815
  Serious: No
  Sender: FDA-Public Use
  Company Number: None

PATIENT

DRUGS (2)
  1. EFFIENT [Suspect]
     Active Substance: PRASUGREL HYDROCHLORIDE
     Route: 048
  2. NORVIR [Suspect]
     Active Substance: RITONAVIR
     Route: 048

REACTIONS (2)
  - Circumstance or information capable of leading to medication error [None]
  - Product container issue [None]
